FAERS Safety Report 17741000 (Version 1)
Quarter: 2020Q2

REPORT INFORMATION
  Report Type: Spontaneous
  Country: US (occurrence: US)
  Receive Date: 20200504
  Receipt Date: 20200504
  Transmission Date: 20200714
  Serious: Yes (Death, Other)
  Sender: FDA-Public Use
  Company Number: US-HIKMA PHARMACEUTICALS USA INC.-US-H14001-20-02054

PATIENT
  Sex: Male

DRUGS (3)
  1. INTERFERON GAMMA NOS [Suspect]
     Active Substance: INTERFERON GAMMA
     Indication: ADJUVANT THERAPY
     Route: 065
  2. IL-2 [Suspect]
     Active Substance: ALDESLEUKIN
     Indication: ADJUVANT THERAPY
     Route: 065
  3. CYCLOPHOSPHAMIDE. [Suspect]
     Active Substance: CYCLOPHOSPHAMIDE
     Indication: LYMPHOCYTE COUNT INCREASED
     Route: 065

REACTIONS (4)
  - Cardiotoxicity [Fatal]
  - Myocarditis [Fatal]
  - Blood creatinine increased [Recovered/Resolved]
  - Fatigue [Unknown]
